FAERS Safety Report 7552563-5 (Version None)
Quarter: 2011Q2

REPORT INFORMATION
  Report Type: 
  Country: None (occurrence: None)
  Receive Date: 20110609
  Receipt Date: 20110525
  Transmission Date: 20111010
  Serious: Yes (Death, Hospitalization)
  Sender: FDA-Public Use
  Company Number: 2011PV000030

PATIENT
  Age: 80 Year
  Sex: Female

DRUGS (2)
  1. DEPOCYT [Suspect]
     Dosage: 50 MG, X2, INTH
     Route: 037
     Dates: start: 20101005, end: 20101113
  2. METHOTREXATE [Suspect]
     Dosage: 4900 MG, IV
     Route: 042
     Dates: start: 20100928

REACTIONS (17)
  - TOXIC EPIDERMAL NECROLYSIS [None]
  - OVERDOSE [None]
  - ACUTE RESPIRATORY FAILURE [None]
  - CYTOMEGALOVIRUS TEST POSITIVE [None]
  - BRONCHIAL OBSTRUCTION [None]
  - RAOULTELLA ORNITHINOLYTICA INFECTION [None]
  - BACTERIAL SEPSIS [None]
  - CENTRAL NERVOUS SYSTEM LYMPHOMA [None]
  - PROTHROMBIN TIME PROLONGED [None]
  - BONE MARROW FAILURE [None]
  - RECURRENT CANCER [None]
  - COMA SCALE ABNORMAL [None]
  - GENERAL PHYSICAL HEALTH DETERIORATION [None]
  - UNEVALUABLE EVENT [None]
  - HEPATITIS A ANTIBODY POSITIVE [None]
  - ALANINE AMINOTRANSFERASE INCREASED [None]
  - DIABETES MELLITUS [None]
